FAERS Safety Report 4523325-8 (Version None)
Quarter: 2004Q4

REPORT INFORMATION
  Report Type: 
  Country: None (occurrence: None)
  Receive Date: 20041209
  Receipt Date: 20041209
  Transmission Date: 20050328
  Serious: Yes (Other)
  Sender: FDA-Public Use
  Company Number: None

PATIENT
  Age: 27 Year
  Sex: Male
  Weight: 85 kg

DRUGS (1)
  1. GENASAL (OXYMETAZOLINE HCL) 0.05% GOLDLINE MIAMI FL [Suspect]
     Indication: EPISTAXIS
     Dosage: 2 SQUIRTS MIL NARES X 1
     Route: 045

REACTIONS (3)
  - CENTRAL NERVOUS SYSTEM STIMULATION [None]
  - IDIOSYNCRATIC DRUG REACTION [None]
  - MUSCLE SPASMS [None]
